FAERS Safety Report 5600937-1 (Version None)
Quarter: 2008Q1

REPORT INFORMATION
  Report Type: 
  Country: None (occurrence: None)
  Receive Date: 20080118
  Receipt Date: 20080104
  Transmission Date: 20080703
  Serious: Yes (Death)
  Sender: FDA-Public Use
  Company Number: 2008001100

PATIENT
  Age: 34 Year
  Sex: Female

DRUGS (16)
  1. PSEUDOEPHEDRINE HCL [Suspect]
     Dosage: ORAL
     Route: 048
  2. DICLOFENAC (DICLOFENAC) [Suspect]
     Dosage: ORAL
     Route: 048
  3. COUGH AND COLD PREPARATIONS (COUGH AND COLD PREPARATIONS) [Suspect]
     Dosage: ORAL
     Route: 048
  4. BUPROPION HCL [Suspect]
     Dosage: ORAL
     Route: 048
  5. ETHANOL (ETHANOL) [Suspect]
     Dosage: ORAL
     Route: 048
  6. VENLAFAXINE HCL [Suspect]
     Dosage: ORAL
     Route: 048
  7. CLOMIPHENE (CLOMIFENE) [Suspect]
     Dosage: ORAL
     Route: 048
  8. NAPROXEN [Suspect]
     Dosage: ORAL
     Route: 048
  9. PSEUDOEPHEDRINE HCL [Concomitant]
  10. DICLOFENAC (DICLOFENAC) [Concomitant]
  11. COUGH AND COLD PREPARATIONS (COUGH AND COLD PREPARATIONS) [Concomitant]
  12. BUPROPION HCL [Concomitant]
  13. ETHANOL (ETHANOL) [Concomitant]
  14. VENLAFAXINE HCL [Concomitant]
  15. CLOMIPHENE (CLOMIFENE) [Concomitant]
  16. NAPROXEN [Concomitant]

REACTIONS (1)
  - DRUG TOXICITY [None]
